FAERS Safety Report 8201648-9 (Version None)
Quarter: 2012Q1

REPORT INFORMATION
  Report Type: 
  Country: None (occurrence: None)
  Receive Date: 20120312
  Receipt Date: 20120227
  Transmission Date: 20120608
  Serious: No
  Sender: FDA-Public Use
  Company Number: JP-ROCHE-1039641

PATIENT
  Sex: Female
  Weight: 55 kg

DRUGS (6)
  1. CO-DIOVANE [Concomitant]
     Route: 048
     Dates: start: 20110112
  2. CALCITRIOL [Concomitant]
     Route: 048
     Dates: start: 20050617
  3. BEVANTOLOL [Concomitant]
     Dosage: REPORTED AS CALVAN
     Route: 048
     Dates: start: 20100921
  4. TAMIFLU [Suspect]
     Indication: INFLUENZA
     Route: 048
     Dates: start: 20120203, end: 20120203
  5. CALCIUM CARBONATE [Concomitant]
     Route: 048
     Dates: start: 20050617
  6. MINOCYCLINE HYDROCHLORIDE [Concomitant]
     Indication: BRONCHITIS
     Dosage: DOSAGE IS UNCERTAIN.
     Route: 048
     Dates: start: 20120203, end: 20120203

REACTIONS (2)
  - LOSS OF CONSCIOUSNESS [None]
  - VOMITING [None]
